FAERS Safety Report 6850415-7 (Version None)
Quarter: 2010Q3

REPORT INFORMATION
  Report Type: 
  Country: None (occurrence: None)
  Receive Date: 20100716
  Receipt Date: 20071021
  Transmission Date: 20110219
  Serious: No
  Sender: FDA-Public Use
  Company Number: US-PFIZER INC-2007088372

PATIENT
  Sex: Male
  Weight: 70.4 kg

DRUGS (3)
  1. CHANTIX [Suspect]
     Indication: SMOKING CESSATION THERAPY
     Dates: start: 20071001, end: 20071017
  2. LORAZEPAM [Concomitant]
  3. TRAMADOL [Concomitant]

REACTIONS (1)
  - NAUSEA [None]
